FAERS Safety Report 6814038-8 (Version None)
Quarter: 2010Q3

REPORT INFORMATION
  Report Type: 
  Country: None (occurrence: None)
  Receive Date: 20100702
  Receipt Date: 20100622
  Transmission Date: 20110219
  Serious: Yes (Hospitalization)
  Sender: FDA-Public Use
  Company Number: PHHY2010GR41594

PATIENT
  Age: 31 Year
  Sex: Male

DRUGS (4)
  1. OXCARBAZEPINE [Suspect]
     Indication: EPILEPSY
     Dosage: 1200 MG PER DAY
  2. OLANZAPINE [Suspect]
     Dosage: 15 MG PER DAY
  3. OLANZAPINE [Suspect]
     Dosage: 20 MG PER DAY
  4. OLANZAPINE [Suspect]
     Dosage: 10 MG PER DAY

REACTIONS (7)
  - BLOOD CREATINE PHOSPHOKINASE INCREASED [None]
  - CONFUSIONAL STATE [None]
  - DYSPHAGIA [None]
  - HYPERTHERMIA [None]
  - HYPERTONIA [None]
  - LEUKOCYTOSIS [None]
  - NEUROLEPTIC MALIGNANT SYNDROME [None]
